FAERS Safety Report 8770388 (Version 1)
Quarter: 2012Q4

REPORT INFORMATION
  Report Type: 
  Country: US (occurrence: US)
  Receive Date: 20120906
  Receipt Date: 20120906
  Transmission Date: 20130627
  Serious: Yes (Other)
  Sender: FDA-Public Use
  Company Number: US-BAXTER-2012BAX016248

PATIENT
  Age: 80 Year
  Sex: Male

DRUGS (2)
  1. NEXTERONE_ [Suspect]
     Indication: ATRIAL FIBRILLATION
  2. WARFARIN [Concomitant]
     Indication: ANTICOAGULANT THERAPY

REACTIONS (8)
  - Factor V inhibition [Recovered/Resolved]
  - Epistaxis [None]
  - Haemoptysis [None]
  - Haematuria [None]
  - Ecchymosis [None]
  - International normalised ratio increased [None]
  - Prothrombin time prolonged [None]
  - Activated partial thromboplastin time prolonged [None]
